FAERS Safety Report 8833744 (Version 3)
Quarter: 2012Q4

REPORT INFORMATION
  Report Type: 
  Country: US (occurrence: US)
  Receive Date: 20121010
  Receipt Date: 20121130
  Transmission Date: 20130627
  Serious: Yes (Hospitalization)
  Sender: FDA-Public Use
  Company Number: US-SANOFI-AVENTIS-2012SA072010

PATIENT
  Age: 69 Year
  Sex: Female
  Weight: 97.68 kg

DRUGS (16)
  1. LANTUS SOLOSTAR [Suspect]
     Indication: DIABETES MELLITUS
     Dosage: 35-40 units in the morning and 60 units in the evening.
     Route: 058
     Dates: start: 1996
  2. LANTUS SOLOSTAR [Suspect]
     Indication: DIABETES MELLITUS
     Dosage: 35-40 units in the morning and 60 units in the evening.
     Route: 058
     Dates: start: 1996
  3. LANTUS SOLOSTAR [Suspect]
     Indication: DIABETES MELLITUS
     Dosage: 35-40 units in the morning and 60 units in the evening.
     Route: 058
     Dates: start: 1996
  4. LANTUS SOLOSTAR [Suspect]
     Indication: DIABETES MELLITUS
     Dosage: 35-40 units in the morning and 60 units in the evening.
     Route: 058
     Dates: start: 1996
  5. SOLOSTAR [Suspect]
     Indication: DIABETES MELLITUS
     Dates: start: 1996
  6. SOLOSTAR [Suspect]
     Indication: DIABETES MELLITUS
     Dates: start: 1996
  7. SOLOSTAR [Suspect]
     Indication: DIABETES MELLITUS
     Dates: start: 1996
  8. SOLOSTAR [Suspect]
     Indication: DIABETES MELLITUS
     Dates: start: 1996
  9. NOVOLOG [Suspect]
     Indication: DIABETES MELLITUS
     Route: 065
  10. FUROSEMIDE [Concomitant]
  11. COUMADIN [Concomitant]
     Indication: COAGULATION DISORDER
  12. PLAVIX [Concomitant]
     Indication: COAGULATION DISORDER
  13. ALL OTHER THERAPEUTIC PRODUCTS [Concomitant]
     Indication: BLOOD PRESSURE HIGH
  14. LISINOPRIL [Concomitant]
     Indication: BLOOD PRESSURE HIGH
  15. SIMVASTATIN [Concomitant]
     Indication: BLOOD CHOLESTEROL ABNORMAL
  16. DOXYCYCLINE HYCLATE [Concomitant]

REACTIONS (5)
  - Thrombosis [Unknown]
  - Coronary artery bypass [Unknown]
  - Blood glucose increased [Unknown]
  - Malaise [Unknown]
  - Injection site induration [Unknown]
